FAERS Safety Report 4591533-6 (Version None)
Quarter: 2005Q1

REPORT INFORMATION
  Report Type: 
  Country: None (occurrence: None)
  Receive Date: 20050222
  Receipt Date: 20050209
  Transmission Date: 20050727
  Serious: Yes (Death, Hospitalization, Other)
  Sender: FDA-Public Use
  Company Number: ATO-05-0014

PATIENT
  Age: 55 Year
  Sex: Female
  Weight: 83 kg

DRUGS (4)
  1. TRISENOX [Suspect]
     Indication: MULTIPLE MYELOMA
     Dosage: SEE IMAGE; AFTER 5 DOSES
     Route: 042
     Dates: start: 20050101, end: 20050106
  2. TRISENOX [Suspect]
     Indication: MULTIPLE MYELOMA
     Dosage: SEE IMAGE; AFTER 5 DOSES
     Route: 042
     Dates: start: 20041118
  3. VITAMIN C [Suspect]
     Dosage: 1 GRAM (BIW), IVI
     Route: 042
     Dates: start: 20041118, end: 20050106
  4. MELPHALAN [Suspect]
     Indication: MULTIPLE MYELOMA
     Dosage: ORAL
     Route: 048
     Dates: start: 20041118

REACTIONS (10)
  - CONVULSION [None]
  - HAEMODIALYSIS [None]
  - MALIGNANT NEOPLASM PROGRESSION [None]
  - MULTIPLE MYELOMA [None]
  - PETIT MAL EPILEPSY [None]
  - PNEUMONIA [None]
  - PNEUMOTHORAX [None]
  - RENAL FAILURE ACUTE [None]
  - RESPIRATORY FAILURE [None]
  - STATUS EPILEPTICUS [None]
